FAERS Safety Report 9260208 (Version 1)
Quarter: 2013Q2

REPORT INFORMATION
  Report Type: Spontaneous
  Country: US (occurrence: US)
  Receive Date: 20130429
  Receipt Date: 20130429
  Transmission Date: 20140414
  Serious: No
  Sender: FDA-Public Use
  Company Number: US-PFIZER INC-2013128398

PATIENT
  Age: 55 Year
  Sex: Female
  Weight: 56.69 kg

DRUGS (3)
  1. LEVOXYL [Suspect]
     Indication: DEPRESSION
     Dosage: UNK, 4X/DAY
     Dates: end: 201304
  2. XANAX [Suspect]
     Indication: ANXIETY
     Dosage: 0.5 MG, 2X/DAY
  3. PARNATE [Suspect]
     Indication: DEPRESSION
     Dosage: 10 MG, 4X/DAY

REACTIONS (6)
  - Pyrexia [Not Recovered/Not Resolved]
  - Chills [Not Recovered/Not Resolved]
  - Anxiety [Unknown]
  - Drug ineffective [Unknown]
  - Product quality issue [Unknown]
  - Drug ineffective [Not Recovered/Not Resolved]
